FAERS Safety Report 8975575 (Version 1)
Quarter: 2012Q4

REPORT INFORMATION
  Report Type: 
  Country: US (occurrence: US)
  Receive Date: 20121219
  Receipt Date: 20121219
  Transmission Date: 20130627
  Serious: Yes (Other)
  Sender: FDA-Public Use
  Company Number: US-ASTRAZENECA-2012SE92881

PATIENT
  Age: 51 Year
  Sex: Male
  Weight: 94.8 kg

DRUGS (5)
  1. METOPROLOL ER [Suspect]
     Indication: BLOOD PRESSURE ABNORMAL
     Dosage: GENERIC
     Route: 048
  2. TOPROL XL [Suspect]
     Indication: BLOOD PRESSURE ABNORMAL
     Route: 048
  3. CRESTOR [Suspect]
     Indication: BLOOD CHOLESTEROL ABNORMAL
     Route: 048
  4. PLAVIX [Suspect]
     Route: 065
  5. PLAVIX [Suspect]
     Dosage: GENERIC
     Route: 065

REACTIONS (7)
  - Haemorrhage [Unknown]
  - Ulcer [Unknown]
  - Cardiac disorder [Unknown]
  - Arterial occlusive disease [Unknown]
  - Adverse event [Unknown]
  - Headache [Unknown]
  - Drug ineffective [Unknown]
